FAERS Safety Report 4760866-2 (Version None)
Quarter: 2005Q3

REPORT INFORMATION
  Report Type: 
  Country: None (occurrence: None)
  Receive Date: 20050826
  Receipt Date: 20041124
  Transmission Date: 20060218
  Serious: Yes (Death)
  Sender: FDA-Public Use
  Company Number: USA-2004-0017820

PATIENT
  Age: 21 Year
  Sex: Male
  Weight: 63.5 kg

DRUGS (3)
  1. OXYCODONE HCL [Suspect]
     Dosage: UNK MG
  2. CITALOPRAM HYDROBROMIDE [Suspect]
     Dosage: UNK MG
  3. GABAPENTIN [Suspect]
     Dosage: UNK MG

REACTIONS (1)
  - MULTIPLE DRUG OVERDOSE [None]
